FAERS Safety Report 17284734 (Version 3)
Quarter: 2024Q2

REPORT INFORMATION
  Report Type: Spontaneous
  Country: HU (occurrence: HU)
  Receive Date: 20200117
  Receipt Date: 20240402
  Transmission Date: 20240716
  Serious: Yes (Hospitalization, Other)
  Sender: FDA-Public Use
  Company Number: HU-GEDEON RICHTER PLC.-2019GR_BP007796

PATIENT
  Age: 15 Year
  Sex: Female

DRUGS (2)
  1. LAMOTRIGINE [Suspect]
     Active Substance: LAMOTRIGINE
     Indication: Generalised tonic-clonic seizure
     Dosage: 150 MILLIGRAM, QD
     Route: 065
     Dates: start: 201812
  2. VALPROATE SODIUM [Concomitant]
     Active Substance: VALPROATE SODIUM
     Indication: Generalised tonic-clonic seizure
     Dosage: UNK
     Route: 065

REACTIONS (2)
  - Encephalitis autoimmune [Recovering/Resolving]
  - Drug reaction with eosinophilia and systemic symptoms [Recovering/Resolving]
